FAERS Safety Report 11635197 (Version 1)
Quarter: 2015Q4

REPORT INFORMATION
  Report Type: Spontaneous
  Country: US (occurrence: US)
  Receive Date: 20151015
  Receipt Date: 20151015
  Transmission Date: 20160304
  Serious: No
  Sender: FDA-Public Use
  Company Number: US-SA-2015SA080824

PATIENT
  Age: 33 Year
  Sex: Female

DRUGS (1)
  1. LEMTRADA [Suspect]
     Active Substance: ALEMTUZUMAB
     Route: 041
     Dates: end: 20150604

REACTIONS (3)
  - Rash [Unknown]
  - Night sweats [Unknown]
  - Chest discomfort [Unknown]

NARRATIVE: CASE EVENT DATE: 20150602
